FAERS Safety Report 18558826 (Version 1)
Quarter: 2020Q4

REPORT INFORMATION
  Report Type: Report from Study
  Country: None (occurrence: EE)
  Receive Date: 20201130
  Receipt Date: 20201130
  Transmission Date: 20210114
  Serious: Yes (Hospitalization)
  Sender: FDA-Public Use
  Company Number: EE-ABBVIE-20K-221-3666638-00

PATIENT
  Age: 70 Year
  Sex: Male

DRUGS (7)
  1. QUETIAPIN [Concomitant]
     Active Substance: QUETIAPINE
     Indication: INSOMNIA
     Dosage: AS NEEDED.
     Route: 048
     Dates: start: 20201013
  2. ASPIRIN. [Concomitant]
     Active Substance: ASPIRIN
     Indication: CARDIAC DISORDER
     Route: 048
     Dates: start: 2019
  3. ROSUVASTATIN. [Concomitant]
     Active Substance: ROSUVASTATIN
     Indication: HYPERCHOLESTEROLAEMIA
     Route: 048
     Dates: start: 20200427
  4. CARDACE [Concomitant]
     Indication: HYPERTENSION
     Route: 048
     Dates: start: 20200427
  5. ZOPICLONE [Concomitant]
     Active Substance: ZOPICLONE
     Indication: INSOMNIA
     Route: 048
     Dates: start: 20191227
  6. DUODOPA [Suspect]
     Active Substance: CARBIDOPA\LEVODOPA
  7. DUODOPA [Suspect]
     Active Substance: CARBIDOPA\LEVODOPA
     Indication: PARKINSON^S DISEASE
     Dosage: MORNING DOSE 9,0ML, CONTINUOUS DOSE 3.4ML/H, EXTRA DOSE 0,5 ML.
     Route: 050
     Dates: start: 20151120

REACTIONS (1)
  - Cardiac pacemaker insertion [Recovered/Resolved]

NARRATIVE: CASE EVENT DATE: 20201028
